FAERS Safety Report 19452260 (Version 1)
Quarter: 2021Q2

REPORT INFORMATION
  Report Type: Spontaneous
  Country: US (occurrence: US)
  Receive Date: 20210623
  Receipt Date: 20210623
  Transmission Date: 20210717
  Serious: No
  Sender: FDA-Public Use
  Company Number: US-ACCORD-182307

PATIENT
  Age: 58 Year
  Sex: Male
  Weight: 81.65 kg

DRUGS (4)
  1. AMLODIPINE [Concomitant]
     Active Substance: AMLODIPINE BESYLATE
     Dosage: 5MG
  2. CLONAZEPAM ACCORD [Suspect]
     Active Substance: CLONAZEPAM
     Indication: SOMNOLENCE
     Dosage: ONCE A DAY EVENING
     Route: 048
     Dates: start: 20200501, end: 20200513
  3. ZYTIGA [Concomitant]
     Active Substance: ABIRATERONE ACETATE
     Dosage: 500MG/1000MG
  4. PREDNISONE. [Concomitant]
     Active Substance: PREDNISONE
     Dosage: 5MG ,WITH ZYTIGA IN AM AM
     Route: 048

REACTIONS (4)
  - Agitation [Unknown]
  - Product substitution issue [Unknown]
  - Insomnia [Recovered/Resolved]
  - Fatigue [Unknown]

NARRATIVE: CASE EVENT DATE: 20200501
